FAERS Safety Report 20746283 (Version 1)
Quarter: 2022Q2

REPORT INFORMATION
  Report Type: Spontaneous
  Country: FR (occurrence: FR)
  Receive Date: 20220425
  Receipt Date: 20220425
  Transmission Date: 20220721
  Serious: Yes (Hospitalization)
  Sender: FDA-Public Use
  Company Number: None

PATIENT
  Age: 60 Year
  Sex: Male
  Weight: 88 kg

DRUGS (16)
  1. KEYTRUDA [Suspect]
     Active Substance: PEMBROLIZUMAB
     Indication: Lung adenocarcinoma
     Dosage: KEYTRUDA? (PEMBROLIZUMAB) 200 MG ON DAY1 EVERY 21 DAYS, 25 MG/ML
     Route: 041
     Dates: start: 20211220, end: 20220221
  2. CARBOPLATIN [Suspect]
     Active Substance: CARBOPLATIN
     Indication: Lung adenocarcinoma
     Dosage: CARBOPLATIN ACCORD HEALTCARE? 5.00 AUC (MG) (COCKROFT) I.E. 740 MG, 10 MG/ML
     Route: 041
     Dates: start: 20211220, end: 20220110
  3. CARBOPLATIN [Suspect]
     Active Substance: CARBOPLATIN
     Dosage: CARBOPLATIN ACCORD HEALTCARE? 5.00 AUC (MG) (COCKROFT) I.E. 720 MG
     Route: 041
     Dates: start: 20220110, end: 20220131
  4. CARBOPLATIN [Suspect]
     Active Substance: CARBOPLATIN
     Dosage: CARBOPLATIN ACCORD HEALTCARE? 5.00 AUC (MG) (COCKROFT) I.E. 600 MG
     Route: 041
     Dates: start: 20220131, end: 20220221
  5. CARBOPLATIN [Suspect]
     Active Substance: CARBOPLATIN
     Dosage: CARBOPLATIN ACCORD HEALTCARE? 5.00 AUC (MG) (COCKROFT) I.E. 570 MG
     Route: 041
     Dates: start: 20220221, end: 20220221
  6. ALIMTA [Suspect]
     Active Substance: PEMETREXED DISODIUM
     Indication: Lung adenocarcinoma
     Dosage: ALIMTA? (PEMETREXED) INJ 500 MG/M? I.E. 1000 MG IN TOTAL ON DAY1 EVERY 21 DAYS
     Route: 041
     Dates: start: 20211220, end: 20220221
  7. METHYLPREDNISOLONE HEMISUCCINATE [Suspect]
     Active Substance: METHYLPREDNISOLONE HEMISUCCINATE
     Indication: Lung adenocarcinoma
     Dosage: METHYLPREDNISOLONE INJECTABLE MYLAN? 60 MG ON DAY1 EVERY 21 DAYS
     Route: 041
     Dates: start: 20211220, end: 20220221
  8. FINASTERIDE [Concomitant]
     Active Substance: FINASTERIDE
     Indication: Benign prostatic hyperplasia
     Dosage: FINASTERIDE 5 MG-0-0
     Route: 048
  9. METHADONE HYDROCHLORIDE [Concomitant]
     Active Substance: METHADONE HYDROCHLORIDE
     Indication: Drug dependence
     Dosage: METHADONE 8 MG 1-0-0
     Route: 048
  10. OXAZEPAM [Concomitant]
     Active Substance: OXAZEPAM
     Indication: Mixed anxiety and depressive disorder
     Dosage: OXAZEPAM 100 MG-0-50 MG
     Route: 048
  11. TRAMADOL HYDROCHLORIDE [Concomitant]
     Active Substance: TRAMADOL HYDROCHLORIDE
     Indication: Neuralgia
     Dosage: TRAMADOL 50 MG IF NECESSARY
     Route: 048
  12. ALFUZOSIN HYDROCHLORIDE [Concomitant]
     Active Substance: ALFUZOSIN HYDROCHLORIDE
     Indication: Benign prostatic hyperplasia
     Dosage: ALFUZOSIN PROLONGED RELEASE 10 MG-0-0
     Route: 048
  13. GABAPENTIN [Concomitant]
     Active Substance: GABAPENTIN
     Indication: Neuralgia
     Dosage: GABAPENTIN 600 MG 1-1-1
     Route: 048
  14. ONDANSETRON HYDROCHLORIDE [Concomitant]
     Active Substance: ONDANSETRON HYDROCHLORIDE
     Indication: Lung adenocarcinoma
     Dosage: ONDANSETRON RENAUDIN? 8 MG ON DAY1 EVERY 21 DAYS
     Route: 041
     Dates: start: 20211220, end: 20220221
  15. QUETIAPINE [Concomitant]
     Active Substance: QUETIAPINE
     Indication: Mixed anxiety and depressive disorder
     Dosage: QUETIAPINE PROLONGED RELEASE 300 MG 0-0-1
     Route: 048
  16. DULOXETINE HYDROCHLORIDE [Concomitant]
     Active Substance: DULOXETINE HYDROCHLORIDE
     Indication: Mixed anxiety and depressive disorder
     Dosage: DULOXETINE 60 MG 1-0-1
     Route: 048

REACTIONS (1)
  - Erysipelas [Recovering/Resolving]

NARRATIVE: CASE EVENT DATE: 20220201
